FAERS Safety Report 5642111-9 (Version None)
Quarter: 2008Q1

REPORT INFORMATION
  Report Type: 
  Country: None (occurrence: None)
  Receive Date: 20080227
  Receipt Date: 20080218
  Transmission Date: 20080703
  Serious: Yes (Hospitalization)
  Sender: FDA-Public Use
  Company Number: GB-MERCK-0501GBR00022

PATIENT
  Age: 49 Year
  Sex: Male

DRUGS (6)
  1. ZETIA [Suspect]
     Indication: BLOOD CHOLESTEROL INCREASED
     Route: 048
     Dates: start: 20040601
  2. ATORVASTATIN CALCIUM [Suspect]
     Indication: BLOOD CHOLESTEROL INCREASED
     Route: 048
     Dates: start: 20040101
  3. VIAGRA [Concomitant]
     Indication: ERECTILE DYSFUNCTION
     Route: 048
     Dates: start: 19990101
  4. CELLCEPT [Concomitant]
     Route: 065
  5. PREDNISOLONE [Concomitant]
     Route: 065
  6. LANSOPRAZOLE [Concomitant]
     Route: 065

REACTIONS (8)
  - FUNGAL SKIN INFECTION [None]
  - IMMUNOSUPPRESSION [None]
  - LABORATORY TEST ABNORMAL [None]
  - MUSCLE INJURY [None]
  - RETINAL TEAR [None]
  - SEBORRHOEIC DERMATITIS [None]
  - UVEITIS [None]
  - VITREOUS DETACHMENT [None]
